FAERS Safety Report 4421481-3 (Version None)
Quarter: 2004Q3

REPORT INFORMATION
  Report Type: 
  Country: None (occurrence: None)
  Receive Date: 20040712
  Receipt Date: 20040414
  Transmission Date: 20050211
  Serious: No
  Sender: FDA-Public Use
  Company Number: 2004-04-1964

PATIENT
  Sex: Female

DRUGS (2)
  1. CLARINEX [Suspect]
     Indication: ABNORMAL SENSATION IN EYE
     Dosage: 1 TABLET ORAL
     Route: 048
  2. CLARINEX [Suspect]
     Indication: HEADACHE
     Dosage: 1 TABLET ORAL
     Route: 048

REACTIONS (2)
  - EUPHORIC MOOD [None]
  - INTENTIONAL MISUSE [None]
